FAERS Safety Report 20943248 (Version 1)
Quarter: 2022Q2

REPORT INFORMATION
  Report Type: Spontaneous
  Country: US (occurrence: None)
  Receive Date: 20220609
  Receipt Date: 20220609
  Transmission Date: 20220721
  Serious: No
  Sender: FDA-Public Use
  Company Number: None

PATIENT
  Age: 40 Year
  Sex: Female

DRUGS (2)
  1. ADEMPAS [Suspect]
     Active Substance: RIOCIGUAT
  2. OPSUMIT [Concomitant]
     Active Substance: MACITENTAN

REACTIONS (1)
  - Hypotension [None]

NARRATIVE: CASE EVENT DATE: 20220603
